FAERS Safety Report 21414387 (Version 2)
Quarter: 2022Q4

REPORT INFORMATION
  Report Type: Spontaneous
  Country: BR (occurrence: BR)
  Receive Date: 20221006
  Receipt Date: 20221201
  Transmission Date: 20230112
  Serious: Yes (Other)
  Sender: FDA-Public Use
  Company Number: BR-CELLTRION INC.-2022BR015943

PATIENT

DRUGS (10)
  1. HERZUMA [Suspect]
     Active Substance: TRASTUZUMAB-PKRB
     Indication: Breast cancer female
     Dosage: 3 AMPOULES - 494;8 ML - EVERY 21 DAYS
     Route: 042
     Dates: end: 20221115
  2. PACLITAXEL [Suspect]
     Active Substance: PACLITAXEL
     Indication: Breast cancer female
     Dosage: D1C1 PACLITAXEL 142;4MG
     Route: 042
  3. DEXAMETHASONE [Concomitant]
     Active Substance: DEXAMETHASONE
     Indication: Premedication
     Dosage: 10 MG
     Route: 042
  4. DIPHENHYDRAMINE [Concomitant]
     Active Substance: DIPHENHYDRAMINE
     Indication: Premedication
     Dosage: 50 MG
     Route: 042
  5. ONDANSETRON [Concomitant]
     Active Substance: ONDANSETRON
     Indication: Premedication
     Dosage: 8 MG
     Route: 042
  6. ACETAMINOPHEN [Concomitant]
     Active Substance: ACETAMINOPHEN
     Indication: Premedication
     Dosage: 500 MG
     Route: 048
  7. METAMIZOLE SODIUM [Concomitant]
     Active Substance: METAMIZOLE SODIUM
     Indication: Pain
     Dosage: 500 MG, 4 PILLS A DAY
     Route: 048
  8. MORPHINE [Concomitant]
     Active Substance: MORPHINE
     Indication: Pain
     Dosage: 10 MG, 6 PILLS A DAY
     Route: 048
  9. BISACODYL [Concomitant]
     Active Substance: BISACODYL
     Indication: Laxative supportive care
     Dosage: 5 MG, 2 PILLS A DAY
     Route: 048
  10. METOCLOPRAMIDE [Concomitant]
     Active Substance: METOCLOPRAMIDE
     Indication: Antiemetic supportive care
     Dosage: 10 MG, 3 PILLS A DAY
     Route: 048

REACTIONS (2)
  - Dyspnoea [Recovered/Resolved]
  - Overdose [Unknown]
